FAERS Safety Report 5641461-X (Version None)
Quarter: 2008Q1

REPORT INFORMATION
  Report Type: 
  Country: None (occurrence: None)
  Receive Date: 20080227
  Receipt Date: 20070907
  Transmission Date: 20080703
  Serious: No
  Sender: FDA-Public Use
  Company Number: A0679037A

PATIENT
  Age: 44 Year
  Sex: Female

DRUGS (1)
  1. NICORETTE [Suspect]

REACTIONS (3)
  - ORAL MUCOSAL ERUPTION [None]
  - STOMATITIS [None]
  - TONGUE DISORDER [None]
